FAERS Safety Report 4847303-4 (Version None)
Quarter: 2005Q4

REPORT INFORMATION
  Report Type: 
  Country: None (occurrence: None)
  Receive Date: 20051202
  Receipt Date: 20051121
  Transmission Date: 20060501
  Serious: Yes (Other)
  Sender: FDA-Public Use
  Company Number: 2005152055

PATIENT
  Age: 78 Year
  Sex: Male

DRUGS (2)
  1. NORVASC [Suspect]
     Indication: BLOOD PRESSURE
     Dosage: SEE IMAGE, ORAL
     Route: 048
     Dates: end: 20051102
  2. NORVASC [Suspect]
     Indication: BLOOD PRESSURE
     Dosage: SEE IMAGE, ORAL
     Route: 048
     Dates: start: 20051102, end: 20051104

REACTIONS (2)
  - OEDEMA PERIPHERAL [None]
  - PULMONARY OEDEMA [None]
